FAERS Safety Report 7242710-7 (Version None)
Quarter: 2011Q1

REPORT INFORMATION
  Report Type: 
  Country: None (occurrence: None)
  Receive Date: 20110125
  Receipt Date: 20110120
  Transmission Date: 20110831
  Serious: Yes (Other)
  Sender: FDA-Public Use
  Company Number: GR-BRISTOL-MYERS SQUIBB COMPANY-15499379

PATIENT
  Age: 74 Year
  Sex: Female

DRUGS (1)
  1. ONGLYZA [Suspect]
     Indication: TYPE 2 DIABETES MELLITUS
     Dosage: T.STOP DATE: APPROX 10JAN11.
     Route: 048
     Dates: start: 20101201, end: 20110101

REACTIONS (4)
  - GASTRITIS [None]
  - VOMITING [None]
  - NAUSEA [None]
  - DECREASED APPETITE [None]
